FAERS Safety Report 6311540-2 (Version None)
Quarter: 2009Q3

REPORT INFORMATION
  Report Type: 
  Country: None (occurrence: None)
  Receive Date: 20090817
  Receipt Date: 20090805
  Transmission Date: 20100115
  Serious: Yes (Death, Life-Threatening, Other)
  Sender: FDA-Public Use
  Company Number: JP-PFIZER INC-2008095195

PATIENT
  Age: 69 Year

DRUGS (4)
  1. RIFABUTIN [Suspect]
     Dosage: UNK
     Route: 048
     Dates: start: 20081017, end: 20081031
  2. CLARITH [Suspect]
     Dosage: UNK
     Route: 048
     Dates: start: 20080919, end: 20081111
  3. ETHAMBUTOL [Suspect]
     Dosage: 3 TABLETS/DAY
     Route: 048
     Dates: start: 20070903, end: 20081111
  4. AMOBAN [Concomitant]
     Route: 048
     Dates: start: 20080111, end: 20081111

REACTIONS (1)
  - INTERSTITIAL LUNG DISEASE [None]
